FAERS Safety Report 7040969-2 (Version None)
Quarter: 2010Q4

REPORT INFORMATION
  Report Type: 
  Country: None (occurrence: None)
  Receive Date: 20101013
  Receipt Date: 20100929
  Transmission Date: 20110411
  Serious: Yes (Death, Other)
  Sender: FDA-Public Use
  Company Number: GB-RANBAXY-2010R1-38647

PATIENT

DRUGS (15)
  1. LISINOPRIL [Suspect]
     Indication: HYPERTENSION
     Dosage: UNK
     Route: 048
     Dates: start: 20020301
  2. ARAVA [Suspect]
     Indication: RHEUMATOID ARTHRITIS
     Dosage: 20 MG, QD
     Route: 048
     Dates: start: 20020301
  3. ARAVA [Suspect]
     Dosage: 20 MG, QD
     Route: 048
  4. ASPIRIN [Concomitant]
     Indication: PAIN
     Dosage: UNK
     Route: 065
     Dates: start: 20020301
  5. ATORVASTATIN CALCIUM [Concomitant]
     Indication: HYPERCHOLESTEROLAEMIA
     Dosage: UNK
     Route: 065
     Dates: start: 19990101
  6. BUDESONIDE [Concomitant]
     Indication: ASTHMA
     Dosage: UNK
     Route: 065
     Dates: start: 20020301
  7. ACETAMINOPHEN AND CODEINE PHOSPHATE [Concomitant]
     Indication: RHEUMATOID ARTHRITIS
     Dosage: UNK
     Route: 065
     Dates: start: 20020301
  8. DILTIAZEM HYDROCHLORIDE [Concomitant]
     Indication: HYPERTENSION
     Dosage: UNK
     Route: 065
     Dates: start: 20020301
  9. FENTANYL [Concomitant]
     Indication: ANAESTHESIA
     Dosage: UNK
     Route: 042
     Dates: start: 20020301, end: 20020301
  10. NITROGLYCERIN [Concomitant]
     Indication: PAIN
     Dosage: UNK
     Route: 065
     Dates: start: 20020301
  11. LANSOPRAZOLE [Concomitant]
     Indication: DUODENAL ULCER
     Dosage: UNK
     Route: 065
     Dates: start: 20020301
  12. MIDAZOLAM HCL [Concomitant]
     Indication: ANAESTHESIA
     Dosage: UNK
     Route: 042
     Dates: start: 20020301, end: 20020301
  13. PANCURONIUM BROMIDE [Concomitant]
     Indication: MUSCLE RELAXANT THERAPY
     Dosage: UNK
     Route: 065
     Dates: start: 20020301, end: 20020301
  14. PROPOFOL [Concomitant]
     Indication: ANAESTHESIA
     Dosage: UNK
     Route: 042
     Dates: start: 20020301, end: 20020301
  15. QUININE SULFATE [Concomitant]
     Indication: MUSCLE SPASMS
     Dosage: UNK
     Route: 065

REACTIONS (7)
  - ACUTE HEPATIC FAILURE [None]
  - CORONARY ARTERY DISEASE [None]
  - DUODENAL ULCER [None]
  - GASTROINTESTINAL HAEMORRHAGE [None]
  - HAEMATEMESIS [None]
  - LABILE BLOOD PRESSURE [None]
  - RENAL FAILURE [None]
